FAERS Safety Report 4405852-7 (Version None)
Quarter: 2004Q3

REPORT INFORMATION
  Report Type: 
  Country: None (occurrence: None)
  Receive Date: 20040723
  Receipt Date: 20040115
  Transmission Date: 20050211
  Serious: No
  Sender: FDA-Public Use
  Company Number: US-GLAXOSMITHKLINE-A0493475A

PATIENT
  Age: 85 Year
  Sex: Male

DRUGS (8)
  1. AVANDIA [Suspect]
     Route: 048
  2. LISINOPRIL [Concomitant]
  3. TOPROL-XL [Concomitant]
  4. ZOCOR [Concomitant]
  5. GLYBURIDE [Concomitant]
  6. POTASSIUM [Concomitant]
  7. ASPIRIN [Concomitant]
  8. FUROSEMIDE [Concomitant]

REACTIONS (2)
  - FATIGUE [None]
  - NASAL CONGESTION [None]
